FAERS Safety Report 5223078-4 (Version None)
Quarter: 2007Q1

REPORT INFORMATION
  Report Type: 
  Country: None (occurrence: None)
  Receive Date: 20070124
  Receipt Date: 20070108
  Transmission Date: 20070707
  Serious: Yes (Other)
  Sender: FDA-Public Use
  Company Number: 8021326

PATIENT
  Age: 55 Year
  Sex: Male
  Weight: 53.2 kg

DRUGS (3)
  1. LEVETIRACETAM [Suspect]
     Indication: EPILEPSY
     Dosage: 250 MG 1/D PO
     Route: 048
     Dates: start: 20060726, end: 20061223
  2. EPILIM [Concomitant]
  3. TEGRETOL [Concomitant]

REACTIONS (1)
  - PLATELET COUNT DECREASED [None]
